FAERS Safety Report 5887491-4 (Version None)
Quarter: 2008Q3

REPORT INFORMATION
  Report Type: 
  Country: None (occurrence: None)
  Receive Date: 20080916
  Receipt Date: 20080903
  Transmission Date: 20090109
  Serious: Yes (Death, Hospitalization)
  Sender: FDA-Public Use
  Company Number: 000671

PATIENT
  Age: 7 Year
  Sex: Male

DRUGS (4)
  1. BUSULFEX [Suspect]
     Indication: STEM CELL TRANSPLANT
     Dosage: 11.6 ML, INTRAVENOUS
     Route: 042
     Dates: start: 20070712, end: 20070715
  2. MELPHALAN (MELPHALAN) [Suspect]
     Dosage: 50 MG, DAILY DOSE INTRAVENOUS
     Route: 042
     Dates: start: 20070716, end: 20070717
  3. CLONAZEPAM [Concomitant]
  4. FILGRASTIM (FILGRASTIM) [Concomitant]

REACTIONS (20)
  - ANOREXIA [None]
  - COAGULOPATHY [None]
  - DEHYDRATION [None]
  - FEBRILE NEUTROPENIA [None]
  - GASTRITIS [None]
  - HAEMOSIDEROSIS [None]
  - HEPATIC FAILURE [None]
  - HEPATIC FUNCTION ABNORMAL [None]
  - HYPERBILIRUBINAEMIA [None]
  - HYPOKALAEMIA [None]
  - HYPOPROTEINAEMIA [None]
  - HYPOXIA [None]
  - INTERSTITIAL LUNG DISEASE [None]
  - MALAISE [None]
  - PLATELET COUNT DECREASED [None]
  - PNEUMOCYSTIS JIROVECI PNEUMONIA [None]
  - PNEUMONIA FUNGAL [None]
  - RENAL IMPAIRMENT [None]
  - SHOCK [None]
  - STEM CELL TRANSPLANT [None]
